FAERS Safety Report 9769117 (Version 1)
Quarter: 2013Q4

REPORT INFORMATION
  Report Type: Spontaneous
  Country: US (occurrence: None)
  Receive Date: 20131216
  Receipt Date: 20131216
  Transmission Date: 20140711
  Serious: Yes (Hospitalization)
  Sender: FDA-Public Use
  Company Number: VAL_01910_2013

PATIENT
  Age: 67 Year
  Sex: Male
  Weight: 101.3 kg

DRUGS (3)
  1. LOPRESSOR [Suspect]
     Indication: PRODUCT USED FOR UNKNOWN INDICATION
     Dosage: (DF)
  2. STUDY DRUG [Suspect]
     Indication: RENAL TRANSPLANT
     Dosage: (100 MG BID ORAL)
     Route: 048
     Dates: start: 20101126, end: 20111224
  3. ADALAT [Concomitant]

REACTIONS (8)
  - Jugular vein thrombosis [None]
  - Deep vein thrombosis [None]
  - Bradycardia [None]
  - Small intestinal obstruction [None]
  - Medical device complication [None]
  - Axillary vein thrombosis [None]
  - Vena cava thrombosis [None]
  - Left atrial dilatation [None]
